FAERS Safety Report 18796442 (Version 1)
Quarter: 2021Q1

REPORT INFORMATION
  Report Type: Report from Study
  Country: BR (occurrence: BR)
  Receive Date: 20210127
  Receipt Date: 20210127
  Transmission Date: 20210419
  Serious: Yes (Hospitalization)
  Sender: FDA-Public Use
  Company Number: NVSC2020BR311691

PATIENT
  Age: 50 Year
  Sex: Female

DRUGS (1)
  1. PIQRAY [Suspect]
     Active Substance: ALPELISIB
     Indication: BREAST CANCER
     Dosage: 250 MG
     Route: 065
     Dates: start: 20201027, end: 20201111

REACTIONS (16)
  - Thirst [Recovered/Resolved]
  - Polyuria [Recovered/Resolved]
  - Drug interaction [Unknown]
  - Erythema [Recovered/Resolved]
  - Rash macular [Recovered/Resolved]
  - Pleural effusion [Unknown]
  - Malaise [Unknown]
  - Polydipsia [Recovered/Resolved]
  - Condition aggravated [Unknown]
  - Expired product administered [Unknown]
  - Hyperglycaemia [Recovered/Resolved]
  - Fatigue [Recovered/Resolved]
  - Blood cholesterol increased [Unknown]
  - Pollakiuria [Recovered/Resolved]
  - Dry mouth [Recovered/Resolved]
  - Vision blurred [Recovered/Resolved]

NARRATIVE: CASE EVENT DATE: 202011
